FAERS Safety Report 14215625 (Version 2)
Quarter: 2018Q4

REPORT INFORMATION
  Report Type: Spontaneous
  Country: US (occurrence: US)
  Receive Date: 20171122
  Receipt Date: 20181031
  Transmission Date: 20190204
  Serious: No
  Sender: FDA-Public Use
  Company Number: US-JNJFOC-20171110765

PATIENT
  Sex: Male

DRUGS (1)
  1. ZYTIGA [Suspect]
     Active Substance: ABIRATERONE ACETATE
     Indication: PRODUCT USED FOR UNKNOWN INDICATION
     Dosage: TAKE 1 HOUR BEFORE OR 2 HOURS AFTER A MEAL
     Route: 048

REACTIONS (4)
  - Vertigo [Unknown]
  - Asthenia [Unknown]
  - Pain [Unknown]
  - Dizziness [Unknown]
